FAERS Safety Report 18650994 (Version 1)
Quarter: 2020Q4

REPORT INFORMATION
  Report Type: Spontaneous
  Country: US (occurrence: US)
  Receive Date: 20201222
  Receipt Date: 20201222
  Transmission Date: 20210114
  Serious: No
  Sender: FDA-Public Use
  Company Number: US-PFIZER INC-2020504566

PATIENT
  Age: 66 Year
  Sex: Male
  Weight: 117.91 kg

DRUGS (1)
  1. INLYTA [Suspect]
     Active Substance: AXITINIB
     Indication: RENAL CELL CARCINOMA
     Dosage: 5 MG, 2X/DAY (TAKE 1 TABLET, ORAL, TWICE A DAY)
     Route: 048
     Dates: start: 20201203, end: 20201211

REACTIONS (1)
  - Hypertension [Not Recovered/Not Resolved]
